FAERS Safety Report 4355713-7 (Version None)
Quarter: 2004Q2

REPORT INFORMATION
  Report Type: 
  Country: None (occurrence: None)
  Receive Date: 20040510
  Receipt Date: 20040510
  Transmission Date: 20050107
  Serious: Yes (Hospitalization)
  Sender: FDA-Public Use
  Company Number: None

PATIENT
  Age: 77 Year
  Sex: Male
  Weight: 69.9 kg

DRUGS (8)
  1. COUMADIN [Suspect]
  2. TERAZOSIN HCL [Concomitant]
  3. ALENDRONATE SODIUM [Concomitant]
  4. NIFEREX [Concomitant]
  5. FOSINOPRIL SODIUM [Concomitant]
  6. SERTRALINE [Concomitant]
  7. CALCIUM ACETATE [Concomitant]
  8. ATENOLOL [Concomitant]

REACTIONS (1)
  - MELAENA [None]
